FAERS Safety Report 15430160 (Version 3)
Quarter: 2019Q2

REPORT INFORMATION
  Report Type: Spontaneous
  Country: US (occurrence: US)
  Receive Date: 20180926
  Receipt Date: 20190524
  Transmission Date: 20190711
  Serious: Yes (Other)
  Sender: FDA-Public Use
  Company Number: US-PFIZER INC-2018266436

PATIENT
  Age: 70 Year
  Sex: Female

DRUGS (1)
  1. XELJANZ [Suspect]
     Active Substance: TOFACITINIB CITRATE
     Indication: RHEUMATOID ARTHRITIS
     Dosage: 5 MG, 2X/DAY

REACTIONS (21)
  - Cerebrovascular accident [Unknown]
  - Dizziness [Unknown]
  - Paraesthesia [Unknown]
  - Fatigue [Unknown]
  - Headache [Recovering/Resolving]
  - Middle insomnia [Unknown]
  - Nausea [Unknown]
  - Alopecia [Unknown]
  - Amnesia [Unknown]
  - Abdominal pain upper [Unknown]
  - Constipation [Unknown]
  - Cough [Unknown]
  - Diplopia [Unknown]
  - Chest pain [Unknown]
  - Lymphadenopathy [Unknown]
  - Swelling [Unknown]
  - Asthenia [Unknown]
  - Muscular weakness [Unknown]
  - Insomnia [Unknown]
  - Weight fluctuation [Unknown]
  - Vision blurred [Unknown]
